FAERS Safety Report 4667527-9 (Version None)
Quarter: 2005Q2

REPORT INFORMATION
  Report Type: 
  Country: None (occurrence: None)
  Receive Date: 20050519
  Receipt Date: 20050519
  Transmission Date: 20051028
  Serious: No
  Sender: FDA-Public Use
  Company Number: None

PATIENT
  Sex: Male
  Weight: 94 kg

DRUGS (2)
  1. DOXAZOSIN MESYLATE [Suspect]
     Indication: BENIGN PROSTATIC HYPERPLASIA
     Dosage: 1MG   QHS   ORAL
     Route: 048
     Dates: start: 20050516, end: 20050518
  2. LISINOPRIL [Concomitant]

REACTIONS (1)
  - HYPOTENSION [None]
